FAERS Safety Report 9255435 (Version 1)
Quarter: 2013Q1

REPORT INFORMATION
  Report Type: Spontaneous
  Country: US (occurrence: None)
  Receive Date: 20121212
  Receipt Date: 20121212
  Transmission Date: 20140127
  Serious: No
  Sender: FDA-Public Use
  Company Number: 1209USA007555

PATIENT
  Age: 32 Year
  Sex: Female

DRUGS (5)
  1. VICTRELIS [Suspect]
     Route: 048
  2. PEGINTRON [Suspect]
  3. ABLIFY(ARIPRAZOLE) INJECTION, 9.75 MG [Concomitant]
  4. PAXIL(PAROXETINE HYDROCHLORIDE) TABLET, 10 MG [Concomitant]
  5. ATIVAN(LORAZEPAM) TABLET,0.5 MG [Concomitant]

REACTIONS (1)
  - Nausea [None]
